FAERS Safety Report 7386808-1 (Version None)
Quarter: 2011Q1

REPORT INFORMATION
  Report Type: 
  Country: None (occurrence: None)
  Receive Date: 20110331
  Receipt Date: 20110325
  Transmission Date: 20110831
  Serious: Yes (Other)
  Sender: FDA-Public Use
  Company Number: FR-PFIZER INC-2011066539

PATIENT
  Age: 44 Year
  Sex: Male

DRUGS (11)
  1. SEROPLEX [Concomitant]
     Dosage: 15 MG, 1X/DAY
     Route: 048
  2. NICORETTE [Concomitant]
     Dosage: 35 MG, 1X/DAY
     Route: 062
  3. EFFERALGAN CODEINE [Concomitant]
     Dosage: 480/4 MG
  4. RIVOTRIL [Concomitant]
     Dosage: 10 GTT, 1X/DAY
     Route: 048
  5. ZOPICLONE [Concomitant]
     Dosage: 7.5 MG, 1X/DAY
     Route: 048
  6. NICOBION [Concomitant]
     Dosage: 500 MG, 2X/DAY
     Route: 048
  7. LYRICA [Suspect]
     Dosage: 50 MG, 2X/DAY
     Route: 048
     Dates: start: 20101004
  8. VITAMIN B1 AND B6 [Concomitant]
     Dosage: 1 DF, 4X/DAY
     Route: 048
  9. AOTAL [Concomitant]
     Dosage: 333 MG, 6X/DAY
     Route: 048
  10. VALIUM [Concomitant]
     Dosage: 10 MG, 3X/DAY
     Route: 048
     Dates: end: 20101016
  11. TERCIAN [Concomitant]
     Dosage: 12.5 MG, 2X/DAY
     Route: 048

REACTIONS (5)
  - ALTERED STATE OF CONSCIOUSNESS [None]
  - SOMNOLENCE [None]
  - NEUROPATHY PERIPHERAL [None]
  - MACROCYTOSIS [None]
  - MIOSIS [None]
